FAERS Safety Report 13560064 (Version 1)
Quarter: 2017Q2

REPORT INFORMATION
  Report Type: Spontaneous
  Country: DE (occurrence: DE)
  Receive Date: 20170518
  Receipt Date: 20170518
  Transmission Date: 20170830
  Serious: Yes (Death)
  Sender: FDA-Public Use
  Company Number: DE-B.I. PHARMACEUTICALS,INC./RIDGEFIELD-2017-BI-027330

PATIENT
  Age: 88 Year
  Sex: Male

DRUGS (3)
  1. PRAXBIND [Suspect]
     Active Substance: IDARUCIZUMAB
     Indication: MALLORY-WEISS SYNDROME
  2. PRAXBIND [Suspect]
     Active Substance: IDARUCIZUMAB
     Indication: SHOCK HAEMORRHAGIC
     Route: 065
  3. PRAXBIND [Suspect]
     Active Substance: IDARUCIZUMAB
     Indication: PEPTIC ULCER

REACTIONS (1)
  - Cardiac failure [Fatal]
